FAERS Safety Report 8570457-3 (Version None)
Quarter: 2012Q3

REPORT INFORMATION
  Report Type: 
  Country: None (occurrence: None)
  Receive Date: 20120803
  Receipt Date: 20120725
  Transmission Date: 20120928
  Serious: Yes (Hospitalization)
  Sender: FDA-Public Use
  Company Number: US-ASTRAZENECA-2012SE52523

PATIENT
  Age: 58 Year
  Sex: Male
  Weight: 72.6 kg

DRUGS (3)
  1. LAMICTAL [Concomitant]
  2. SEROQUEL XR [Suspect]
     Indication: BIPOLAR DISORDER
     Route: 048
     Dates: start: 20120711
  3. KLONOPIN [Concomitant]

REACTIONS (3)
  - SUICIDAL IDEATION [None]
  - THERAPEUTIC RESPONSE UNEXPECTED [None]
  - INTENTIONAL DRUG MISUSE [None]
